FAERS Safety Report 16186611 (Version 1)
Quarter: 2019Q2

REPORT INFORMATION
  Report Type: Spontaneous
  Country: FR (occurrence: FR)
  Receive Date: 20190411
  Receipt Date: 20190411
  Transmission Date: 20190711
  Serious: Yes (Hospitalization)
  Sender: FDA-Public Use
  Company Number: FR-MYLANLABS-2019M1034173

PATIENT
  Age: 1 Month
  Sex: Male
  Weight: 4.33 kg

DRUGS (5)
  1. NORADRENALINE                      /00127501/ [Suspect]
     Active Substance: NOREPINEPHRINE
     Indication: HAEMODYNAMIC INSTABILITY
     Dosage: UNK
     Route: 042
     Dates: start: 20180809
  2. METRONIDAZOLE. [Suspect]
     Active Substance: METRONIDAZOLE
     Indication: SEPSIS
     Dosage: UNK
     Route: 042
     Dates: start: 20180809
  3. FUROSEMIDE. [Suspect]
     Active Substance: FUROSEMIDE
     Indication: OEDEMA
     Dosage: UNK
     Route: 042
     Dates: start: 20180809
  4. PIPERACILLIN AND TAZOBACTAM [Suspect]
     Active Substance: PIPERACILLIN SODIUM\TAZOBACTAM SODIUM
     Indication: SEPSIS
     Dosage: 1200 MILLIGRAM, QD
     Route: 042
     Dates: start: 20180815
  5. PROHIPPUR [Suspect]
     Active Substance: SODIUM BENZOATE
     Indication: TYROSINAEMIA
     Dosage: 1 GRAM, QD
     Route: 048
     Dates: start: 20180814

REACTIONS (2)
  - Dyskinesia [Recovered/Resolved]
  - Seizure [Recovered/Resolved]

NARRATIVE: CASE EVENT DATE: 20180815
